FAERS Safety Report 11381866 (Version 1)
Quarter: 2015Q3

REPORT INFORMATION
  Report Type: Spontaneous
  Country: GB (occurrence: GB)
  Receive Date: 20150814
  Receipt Date: 20150814
  Transmission Date: 20151125
  Serious: Yes (Other)
  Sender: FDA-Public Use
  Company Number: GB-GALDERMA-GB15006435

PATIENT
  Age: 60 Year
  Sex: Female
  Weight: 69.85 kg

DRUGS (1)
  1. CLOBETASOL [Suspect]
     Active Substance: CLOBETASOL
     Indication: LICHEN SCLEROSUS
     Route: 061
     Dates: start: 20150530, end: 20150601

REACTIONS (7)
  - Anorgasmia [Recovering/Resolving]
  - Product use issue [Recovering/Resolving]
  - Skin discolouration [Recovering/Resolving]
  - Genital burning sensation [Recovering/Resolving]
  - Genital pain [Recovering/Resolving]
  - Genital swelling [Recovering/Resolving]
  - Disturbance in sexual arousal [Recovering/Resolving]

NARRATIVE: CASE EVENT DATE: 20150530
